FAERS Safety Report 7321369-4 (Version None)
Quarter: 2011Q1

REPORT INFORMATION
  Report Type: 
  Country: None (occurrence: None)
  Receive Date: 20110223
  Receipt Date: 20110223
  Transmission Date: 20110831
  Serious: Yes (Hospitalization)
  Sender: FDA-Public Use
  Company Number: None

PATIENT
  Sex: Female
  Weight: 70.1 kg

DRUGS (6)
  1. ETOPOSIDE [Suspect]
     Dosage: 348 MG
  2. RITUXIMAB (MOAB C2B8 ANTI CD20 CHIMERIC) [Suspect]
     Dosage: 653 MG
  3. CYCLOPHOSPHAMIDE [Suspect]
     Dosage: 1310 MG
  4. DOXORUBICIN HCL [Suspect]
     Dosage: 69.6 MG
  5. PREDNISONE TAB [Suspect]
     Dosage: 1000 MG
  6. VINCRISTINE SULFATE [Suspect]
     Dosage: 2.8 MG

REACTIONS (2)
  - SUBCLAVIAN VEIN THROMBOSIS [None]
  - PULMONARY EMBOLISM [None]
